FAERS Safety Report 5384671-1 (Version None)
Quarter: 2007Q3

REPORT INFORMATION
  Report Type: 
  Country: None (occurrence: None)
  Receive Date: 20070710
  Receipt Date: 20070328
  Transmission Date: 20080115
  Serious: Yes (Hospitalization)
  Sender: FDA-Public Use
  Company Number: 2007-00865

PATIENT
  Age: 62 Year
  Sex: Male
  Weight: 68.5 kg

DRUGS (3)
  1. VELCADE [Suspect]
     Indication: MULTIPLE MYELOMA
     Dosage: 1.00 MG/M2, INTRAVENOUS
     Route: 042
     Dates: start: 20070319, end: 20070322
  2. DEXAMETHASONE 0.5MG TAB [Concomitant]
  3. ATENOLOL [Concomitant]

REACTIONS (1)
  - ATRIAL FLUTTER [None]
